FAERS Safety Report 19180832 (Version 1)
Quarter: 2021Q2

REPORT INFORMATION
  Report Type: Spontaneous
  Country: CN (occurrence: CN)
  Receive Date: 20210426
  Receipt Date: 20210426
  Transmission Date: 20210717
  Serious: Yes (Hospitalization)
  Sender: FDA-Public Use
  Company Number: CN-PFIZER INC-2021412593

PATIENT
  Age: 39 Year
  Sex: Male
  Weight: 70 kg

DRUGS (2)
  1. TAZOCIN [Suspect]
     Active Substance: PIPERACILLIN SODIUM\TAZOBACTAM SODIUM
     Indication: SIALOADENITIS
     Dosage: 4.500 G, 3X/DAY
     Route: 041
     Dates: start: 20210308, end: 20210310
  2. FENG TI XIN [Suspect]
     Active Substance: CEFOTIAM HYDROCHLORIDE
     Indication: SIALOADENITIS
     Dosage: 2.000 G, 2X/DAY
     Route: 041
     Dates: start: 20210305, end: 20210308

REACTIONS (2)
  - Drug ineffective [Unknown]
  - Transaminases increased [Recovering/Resolving]

NARRATIVE: CASE EVENT DATE: 202103
